FAERS Safety Report 8020672-2 (Version None)
Quarter: 2012Q1

REPORT INFORMATION
  Report Type: 
  Country: None (occurrence: None)
  Receive Date: 20120103
  Receipt Date: 20111222
  Transmission Date: 20120608
  Serious: Yes (Hospitalization, Other)
  Sender: FDA-Public Use
  Company Number: US-ASTRAZENECA-2011SE77925

PATIENT
  Age: 60 Year
  Sex: Female
  Weight: 48.5 kg

DRUGS (3)
  1. LEXAPRO [Concomitant]
  2. CLINOZEPAN [Concomitant]
  3. SEROQUEL [Suspect]
     Indication: BIPOLAR DISORDER
     Route: 048

REACTIONS (7)
  - MEMORY IMPAIRMENT [None]
  - MALAISE [None]
  - BRAIN NEOPLASM MALIGNANT [None]
  - LUNG CARCINOMA CELL TYPE UNSPECIFIED STAGE IV [None]
  - FEELING ABNORMAL [None]
  - SEPSIS [None]
  - FATIGUE [None]
